FAERS Safety Report 7263813-7 (Version None)
Quarter: 2011Q1

REPORT INFORMATION
  Report Type: 
  Country: None (occurrence: None)
  Receive Date: 20110130
  Receipt Date: 20101029
  Transmission Date: 20110831
  Serious: No
  Sender: FDA-Public Use
  Company Number: US-ABBOTT-10P-163-0682417-00

PATIENT
  Age: 74 Year
  Sex: Female

DRUGS (8)
  1. METOPROLOL [Concomitant]
     Indication: CARDIAC DISORDER
  2. INHALER [Concomitant]
     Indication: PRODUCT USED FOR UNKNOWN INDICATION
     Dosage: TWICE DAILY
  3. TRAMADOL HCL [Concomitant]
     Indication: PAIN
     Dosage: AS NEEDED
  4. HUMIRA [Suspect]
     Indication: RHEUMATOID ARTHRITIS
     Dosage: EVERY OTHER WEEK
     Dates: start: 20100901
  5. AVELOX [Concomitant]
     Indication: INFECTION
  6. SYNTHROID [Concomitant]
     Indication: THYROID DISORDER
  7. DILTIAZEM [Concomitant]
     Indication: HYPERTENSION
  8. LOSARTAN POTASSIUM [Concomitant]
     Indication: PRODUCT USED FOR UNKNOWN INDICATION
     Dosage: 100-25MG ONCE A DAY

REACTIONS (1)
  - INJECTION SITE HAEMATOMA [None]
